FAERS Safety Report 19709610 (Version 1)
Quarter: 2021Q3

REPORT INFORMATION
  Report Type: Report from Study
  Country: US (occurrence: US)
  Receive Date: 20210816
  Receipt Date: 20210816
  Transmission Date: 20211014
  Serious: Yes (Other)
  Sender: FDA-Public Use
  Company Number: US-BRISTOL-MYERS SQUIBB COMPANY-BMS-2021-078039

PATIENT
  Age: 75 Year
  Sex: Male

DRUGS (4)
  1. COVID?19 VACCINE NOS. [Suspect]
     Active Substance: COVID-19 VACCINE NOS
     Indication: COVID-19 IMMUNISATION
     Route: 065
  2. NIVOLUMAB [Suspect]
     Active Substance: NIVOLUMAB
     Indication: MALIGNANT MELANOMA
     Dosage: 4 DOSES RECEIVED IN COMBINATION IN FREQUENCY OF EVERY 3 WEEKS
     Route: 042
     Dates: start: 2019
  3. LISINOPRIL. [Concomitant]
     Active Substance: LISINOPRIL
     Indication: HYPERTENSION
     Dosage: UNKNOWN
     Route: 065
  4. NIVOLUMAB [Suspect]
     Active Substance: NIVOLUMAB
     Dosage: RECEIVED MONOTHERAPY ONCE MONTHLY FOR 2 YEARS
     Route: 042
     Dates: end: 202101

REACTIONS (3)
  - Arthropathy [Unknown]
  - Off label use [Unknown]
  - Pemphigoid [Unknown]

NARRATIVE: CASE EVENT DATE: 202103
